FAERS Safety Report 9444413 (Version 2)
Quarter: 2013Q3

REPORT INFORMATION
  Report Type: Spontaneous
  Country: US (occurrence: None)
  Receive Date: 20130805
  Receipt Date: 20130816
  Transmission Date: 20140515
  Serious: Yes (Death, Hospitalization)
  Sender: FDA-Public Use
  Company Number: UTC-035988

PATIENT
  Age: 82 Year
  Sex: Female

DRUGS (10)
  1. TYVASO (6 MICROGRAM, AEROSOL FOR INHALATION) (TREPROSTINIL SODIUM) [Suspect]
     Indication: COR PULMONALE CHRONIC
     Dosage: 216 MCG (54 MCG, 4 IN 1 D) INHALATION
     Dates: start: 20120529
  2. FERROUS SULFATE [Concomitant]
  3. APAP [Concomitant]
  4. ASCORBIC ACID [Concomitant]
  5. REVATIO [Concomitant]
  6. WARFARIN [Concomitant]
  7. FUROSEMIDE [Concomitant]
  8. CARDURA [Concomitant]
  9. PRILOSEC [Concomitant]
  10. POTASSIUM [Concomitant]

REACTIONS (1)
  - Gastrointestinal haemorrhage [None]
